FAERS Safety Report 9741689 (Version 2)
Quarter: 2013Q4

REPORT INFORMATION
  Report Type: Spontaneous
  Country: JP (occurrence: JP)
  Receive Date: 20131210
  Receipt Date: 20131210
  Transmission Date: 20140711
  Serious: Yes (Hospitalization)
  Sender: FDA-Public Use
  Company Number: JP-ROCHE-1244378

PATIENT
  Age: 83 Year
  Sex: Female

DRUGS (16)
  1. ACTEMRA [Suspect]
     Indication: RHEUMATOID ARTHRITIS
     Route: 041
     Dates: start: 20100828, end: 20110625
  2. ACTEMRA [Suspect]
     Indication: RHEUMATOID ARTHRITIS
     Route: 041
     Dates: start: 20110728, end: 20120611
  3. ACTEMRA [Suspect]
     Indication: RHEUMATOID ARTHRITIS
     Route: 041
     Dates: start: 20120707, end: 20121006
  4. PREDNISOLONE [Concomitant]
     Indication: RHEUMATOID ARTHRITIS
     Route: 048
     Dates: start: 20100710, end: 20100806
  5. PREDNISOLONE [Concomitant]
     Indication: RHEUMATOID ARTHRITIS
     Route: 048
     Dates: start: 20100807, end: 20100813
  6. PREDNISOLONE [Concomitant]
     Indication: RHEUMATOID ARTHRITIS
     Route: 048
     Dates: start: 20100814, end: 20100820
  7. PREDNISOLONE [Concomitant]
     Indication: RHEUMATOID ARTHRITIS
     Route: 048
     Dates: start: 20100821
  8. PREDNISOLONE [Concomitant]
     Indication: RHEUMATOID ARTHRITIS
     Route: 048
  9. GASTER (JAPAN) [Concomitant]
     Indication: PROPHYLAXIS
     Route: 048
     Dates: start: 20100807, end: 20100828
  10. ADALAT L [Concomitant]
     Indication: HYPERTENSION
     Route: 048
  11. BONALON [Concomitant]
     Indication: OSTEOPOROSIS
     Route: 048
  12. VESICARE [Concomitant]
     Indication: POLLAKIURIA
     Route: 048
  13. LASIX [Concomitant]
     Indication: HYPERTENSION
     Route: 048
  14. BROCIN [Concomitant]
     Indication: UPPER RESPIRATORY TRACT INFLAMMATION
     Route: 048
     Dates: start: 20111012, end: 20111028
  15. GENINAX [Concomitant]
     Route: 065
     Dates: start: 20121012
  16. TOCLASE [Concomitant]
     Route: 065
     Dates: start: 20121012

REACTIONS (2)
  - Thrombocytopenia [Recovered/Resolved]
  - Enterocolitis [Recovered/Resolved]
